FAERS Safety Report 14882990 (Version 1)
Quarter: 2018Q2

REPORT INFORMATION
  Report Type: Spontaneous
  Country: CH (occurrence: CH)
  Receive Date: 20180511
  Receipt Date: 20180511
  Transmission Date: 20180711
  Serious: Yes (Death, Hospitalization)
  Sender: FDA-Public Use
  Company Number: CH-TEVA-807945ISR

PATIENT
  Sex: Male

DRUGS (10)
  1. FUROSEMIDE. [Concomitant]
     Active Substance: FUROSEMIDE
     Dates: start: 20170906
  2. ASPIRINE [Concomitant]
     Active Substance: ASPIRIN
  3. PROPOFOL. [Suspect]
     Active Substance: PROPOFOL
     Route: 040
     Dates: start: 20170906, end: 20170906
  4. ENOXAPARIN [Concomitant]
     Active Substance: ENOXAPARIN
  5. IPRAMOL [Suspect]
     Active Substance: ALBUTEROL SULFATE\IPRATROPIUM BROMIDE
     Dosage: 4 DOSAGE FORMS DAILY;
     Route: 045
     Dates: start: 20170829, end: 20170830
  6. ESOMEPRAZOLE [Concomitant]
     Active Substance: ESOMEPRAZOLE
  7. METRONIDAZOLE. [Concomitant]
     Active Substance: METRONIDAZOLE
     Dates: start: 20170901
  8. VITAMIN B1 [Concomitant]
     Active Substance: THIAMINE HYDROCHLORIDE
  9. CEFTRIAXONE. [Concomitant]
     Active Substance: CEFTRIAXONE
     Dates: start: 20170901
  10. PARACETAMOL [Concomitant]
     Active Substance: ACETAMINOPHEN

REACTIONS (2)
  - Condition aggravated [Fatal]
  - Hyperlactacidaemia [Not Recovered/Not Resolved]

NARRATIVE: CASE EVENT DATE: 2017
